FAERS Safety Report 21777786 (Version 1)
Quarter: 2022Q4

REPORT INFORMATION
  Report Type: Spontaneous
  Country: CN (occurrence: CN)
  Receive Date: 20221226
  Receipt Date: 20221226
  Transmission Date: 20230113
  Serious: Yes (Hospitalization, Other)
  Sender: FDA-Public Use
  Company Number: None

PATIENT
  Age: 13 Year
  Sex: Female
  Weight: 50 kg

DRUGS (6)
  1. CYCLOPHOSPHAMIDE [Suspect]
     Active Substance: CYCLOPHOSPHAMIDE
     Indication: Thalassaemia
     Dosage: 3000 MG, QD, DILUTED WITH 250 ML OF 0.9% SODIUM CHLORIDE (PUMP)
     Route: 041
     Dates: start: 20221024, end: 20221026
  2. SODIUM CHLORIDE [Suspect]
     Active Substance: SODIUM CHLORIDE
     Indication: Medication dilution
     Dosage: 250 ML, QD, USED TO DILUTE 3000 MG OF CYCLOPHOSPHAMIDE INJECTION (PUMP)
     Route: 041
     Dates: start: 20221024, end: 20221026
  3. SODIUM CHLORIDE [Suspect]
     Active Substance: SODIUM CHLORIDE
     Dosage: 150 ML, QD, USED TO DILUTE 57 MG OF FLUDARABINE PHOSPHATE FOR INJECTION
     Route: 041
     Dates: start: 20221026, end: 20221030
  4. THIOTEPA [Suspect]
     Active Substance: THIOTEPA
     Indication: Thalassaemia
     Dosage: 490 MG, QD
     Route: 041
     Dates: start: 20221028, end: 20221028
  5. FLUDARABINE PHOSPHATE [Suspect]
     Active Substance: FLUDARABINE PHOSPHATE
     Indication: Thalassaemia
     Dosage: 57 MG, QD, DILUTED WITH 150 ML OF 0.9% SODIUM CHLORIDE
     Route: 041
     Dates: start: 20221026, end: 20221030
  6. BUSULFAN [Suspect]
     Active Substance: BUSULFAN
     Indication: Thalassaemia
     Dosage: 30 MG, 4 TIMES A DAY
     Route: 041
     Dates: start: 20221024, end: 20221024

REACTIONS (3)
  - Myelosuppression [Recovering/Resolving]
  - Thrombocytopenia [Recovering/Resolving]
  - Pyrexia [Recovering/Resolving]

NARRATIVE: CASE EVENT DATE: 20221106
